FAERS Safety Report 6674461-1 (Version None)
Quarter: 2010Q2

REPORT INFORMATION
  Report Type: 
  Country: None (occurrence: None)
  Receive Date: 20100409
  Receipt Date: 20100402
  Transmission Date: 20101027
  Serious: Yes (Death, Life-Threatening, Hospitalization, Other)
  Sender: FDA-Public Use
  Company Number: PHHY2009JP42490

PATIENT
  Sex: Male
  Weight: 58 kg

DRUGS (9)
  1. ICL670A ICL+DISTAB [Suspect]
     Indication: IRON OVERLOAD
     Dosage: 1000 MG/DAY
     Route: 048
     Dates: start: 20081202, end: 20081229
  2. ICL670A ICL+DISTAB [Suspect]
     Indication: APLASIA PURE RED CELL
  3. HERBESSER [Suspect]
     Indication: CARDIAC FAILURE CONGESTIVE
     Dosage: 200 MG/DAY
     Route: 048
     Dates: start: 20081203, end: 20081229
  4. IMURAN [Concomitant]
     Indication: APLASIA PURE RED CELL
     Dosage: 50 MG, UNK
     Route: 048
     Dates: start: 20081202, end: 20081229
  5. PREDONINE [Concomitant]
     Indication: APLASIA PURE RED CELL
     Dosage: 10 MG, UNK
     Route: 048
     Dates: start: 20081202, end: 20081229
  6. PROSTAL [Concomitant]
     Dosage: 100 MG, UNK
     Route: 048
     Dates: end: 20081229
  7. LASIX [Concomitant]
     Indication: CARDIAC FAILURE CONGESTIVE
     Dosage: 80 MG, UNK
     Route: 048
     Dates: start: 20080205, end: 20091229
  8. WARFARIN SODIUM [Concomitant]
     Indication: ATRIAL FIBRILLATION
     Dosage: 2.5 MG, UNK
     Route: 048
     Dates: end: 20081229
  9. LANIRAPID [Concomitant]
     Indication: CARDIAC FAILURE CONGESTIVE
     Dosage: 005 MG, UNK
     Route: 048
     Dates: end: 20081229

REACTIONS (6)
  - BRADYCARDIA [None]
  - CARDIAC FAILURE CONGESTIVE [None]
  - DEMENTIA [None]
  - HYPOTENSION [None]
  - MALIGNANT NEOPLASM PROGRESSION [None]
  - PLATELET COUNT DECREASED [None]
